FAERS Safety Report 8798692 (Version 1)
Quarter: 2012Q4

REPORT INFORMATION
  Report Type: Spontaneous
  Country: US (occurrence: None)
  Receive Date: 20120917
  Receipt Date: 20120917
  Transmission Date: 20130627
  Serious: No
  Sender: FDA-Public Use
  Company Number: None

PATIENT
  Age: 10 Year
  Sex: Female
  Weight: 38.1 kg

DRUGS (7)
  1. MONTELUKAST [Suspect]
     Indication: MULTIPLE ALLERGIES
     Dosage: 5 mg 1/day po
     Route: 048
     Dates: start: 20120912, end: 20120913
  2. SUDAFED [Concomitant]
  3. FLUTICASONE [Concomitant]
  4. ZYRTEC [Concomitant]
  5. SUDAFED [Concomitant]
  6. FLUTICASONE [Concomitant]
  7. ZYRETEC [Concomitant]

REACTIONS (4)
  - Abnormal behaviour [None]
  - Anxiety [None]
  - Depression [None]
  - Feeling jittery [None]
